FAERS Safety Report 18470655 (Version 3)
Quarter: 2020Q4

REPORT INFORMATION
  Report Type: Report from Study
  Country: HR (occurrence: CA)
  Receive Date: 20201105
  Receipt Date: 20201204
  Transmission Date: 20210114
  Serious: Yes (Death, Hospitalization)
  Sender: FDA-Public Use
  Company Number: CA-HLS-202000278

PATIENT
  Age: 70 Year
  Sex: Female

DRUGS (1)
  1. CLOZARIL [Suspect]
     Active Substance: CLOZAPINE
     Indication: PRODUCT USED FOR UNKNOWN INDICATION
     Route: 048
     Dates: start: 19980112, end: 20201016

REACTIONS (2)
  - Death [Fatal]
  - Lung cancer metastatic [Unknown]

NARRATIVE: CASE EVENT DATE: 20201016
